FAERS Safety Report 10994664 (Version 6)
Quarter: 2015Q3

REPORT INFORMATION
  Report Type: Report from Study
  Country: US (occurrence: US)
  Receive Date: 20150407
  Receipt Date: 20150921
  Transmission Date: 20151125
  Serious: Yes (Hospitalization, Other)
  Sender: FDA-Public Use
  Company Number: US-GILEAD-2015-0147178

PATIENT
  Age: 46 Year
  Sex: Female
  Weight: 68.27 kg

DRUGS (7)
  1. REMODULIN [Suspect]
     Active Substance: TREPROSTINIL
     Indication: PULMONARY HYPERTENSION
     Dosage: 0.092 UG/KG, UNK
     Route: 042
     Dates: start: 20131211
  2. AMBRISENTAN [Suspect]
     Active Substance: AMBRISENTAN
     Dosage: 10 MG, UNK
     Route: 065
     Dates: start: 20130404
  3. REMODULIN [Suspect]
     Active Substance: TREPROSTINIL
     Dosage: 0.092 UG/KG, UNK
     Route: 042
  4. REVATIO [Concomitant]
     Active Substance: SILDENAFIL CITRATE
     Dosage: UNK
  5. AMBRISENTAN [Suspect]
     Active Substance: AMBRISENTAN
     Indication: PULMONARY HYPERTENSION
     Dosage: 5 MG, QD
     Route: 065
     Dates: start: 20110209
  6. REMODULIN [Suspect]
     Active Substance: TREPROSTINIL
     Dosage: 0.092 UG/KG, UNK
     Route: 042
     Dates: start: 20140713
  7. REMODULIN [Suspect]
     Active Substance: TREPROSTINIL
     Dosage: 0.092 UG/KG, UNK
     Route: 042
     Dates: start: 20140806

REACTIONS (13)
  - Catheter site haemorrhage [Unknown]
  - Catheter site discharge [Unknown]
  - Somnolence [Unknown]
  - Injection site rash [Unknown]
  - Device occlusion [Unknown]
  - Device damage [Unknown]
  - Catheter placement [Unknown]
  - Nausea [Unknown]
  - Device leakage [Unknown]
  - Thrombosis in device [Unknown]
  - Urticaria [Unknown]
  - Rash [Unknown]
  - Catheter site pain [Unknown]

NARRATIVE: CASE EVENT DATE: 201503
